FAERS Safety Report 7937640-9 (Version None)
Quarter: 2011Q4

REPORT INFORMATION
  Report Type: 
  Country: None (occurrence: None)
  Receive Date: 20111123
  Receipt Date: 20111108
  Transmission Date: 20120403
  Serious: Yes (Hospitalization, Other)
  Sender: FDA-Public Use
  Company Number: PHHY2011US45940

PATIENT
  Sex: Male
  Weight: 199 kg

DRUGS (8)
  1. LOTREL [Suspect]
     Indication: HYPERTENSION
     Dosage: 1 DF, QD
     Route: 048
  2. LOVAZA [Concomitant]
     Dosage: UNK UKN, UNK
  3. ALENDRONATE SODIUM [Concomitant]
     Dosage: UNK UKN, QW
  4. ACETYLSALICYLIC ACID SRT [Concomitant]
  5. CENTRUM [Concomitant]
     Dosage: UNK UKN, UNK
  6. CALCIUM [Concomitant]
     Dosage: UNK UKN, UNK
  7. ASPIRIN [Concomitant]
     Dosage: UNK UKN, UNK
  8. AMLODIPINE BESYLATE AND BENAZEPRIL HCL [Suspect]
     Dosage: 1 DF, QD

REACTIONS (4)
  - CEREBROVASCULAR ACCIDENT [None]
  - BLOOD PRESSURE INCREASED [None]
  - DRUG INEFFECTIVE [None]
  - DIZZINESS [None]
